FAERS Safety Report 8987928 (Version 3)
Quarter: 2013Q2

REPORT INFORMATION
  Report Type: Spontaneous
  Country: JP (occurrence: JP)
  Receive Date: 20121227
  Receipt Date: 20130610
  Transmission Date: 20140414
  Serious: Yes (Hospitalization, Other)
  Sender: FDA-Public Use
  Company Number: JP-ELI_LILLY_AND_COMPANY-JP201212006776

PATIENT
  Age: 74 Year
  Sex: Female
  Weight: 43 kg

DRUGS (9)
  1. CYMBALTA [Suspect]
     Dosage: UNK
     Route: 048
     Dates: end: 20121213
  2. FORTEO [Suspect]
     Dosage: UNK
     Route: 058
  3. CALONAL [Concomitant]
  4. TOWAMIN [Concomitant]
  5. MUCOSTA [Concomitant]
  6. LOXONIN [Concomitant]
  7. DOGMATYL [Concomitant]
     Dosage: UNK
     Dates: end: 20121213
  8. LENDORMIN [Concomitant]
  9. NIFEDIPINE [Concomitant]

REACTIONS (2)
  - Altered state of consciousness [Recovering/Resolving]
  - Vomiting [Unknown]
